FAERS Safety Report 6110613-7 (Version None)
Quarter: 2009Q1

REPORT INFORMATION
  Report Type: 
  Country: None (occurrence: None)
  Receive Date: 20090306
  Receipt Date: 20090107
  Transmission Date: 20090719
  Serious: Yes (Death)
  Sender: FDA-Public Use
  Company Number: DSA_62482_2009

PATIENT
  Age: 41 Year
  Sex: Female

DRUGS (1)
  1. ACETAMINOP. W/BUTALBITAL/ CAFF./ CODEINE PHOSP. [Suspect]
     Indication: DRUG USE FOR UNKNOWN INDICATION
     Dosage: DF ORAL
     Route: 048

REACTIONS (1)
  - COMPLETED SUICIDE [None]
